FAERS Safety Report 4307012-7 (Version None)
Quarter: 2004Q1

REPORT INFORMATION
  Report Type: 
  Country: None (occurrence: None)
  Receive Date: 20040225
  Receipt Date: 20040211
  Transmission Date: 20041129
  Serious: Yes (Other)
  Sender: FDA-Public Use
  Company Number: GB-SHR-04-021537

PATIENT
  Age: 41 Year
  Sex: Female

DRUGS (6)
  1. CAMPATH [Suspect]
     Indication: BEHCET'S SYNDROME
     Dosage: 4/10/40 MG/D INTRAVENOUS
     Route: 042
  2. HYDROCORTISONE [Concomitant]
  3. CHLORPHENIRAMINE MALEATE [Concomitant]
  4. ACYCLOVIR [Concomitant]
  5. NYSTATIN [Concomitant]
  6. PREDNISOLONE [Concomitant]

REACTIONS (1)
  - HYPOTHYROIDISM [None]
